FAERS Safety Report 19708286 (Version 1)
Quarter: 2021Q3

REPORT INFORMATION
  Report Type: Spontaneous
  Country: IN (occurrence: IN)
  Receive Date: 20210816
  Receipt Date: 20210816
  Transmission Date: 20211014
  Serious: Yes (Other)
  Sender: FDA-Public Use
  Company Number: IN-MYLANLABS-2021M1051024

PATIENT
  Age: 35 Year
  Sex: Male

DRUGS (18)
  1. PREDNISOLONE. [Suspect]
     Active Substance: PREDNISOLONE
     Indication: TYPE 2 LEPRA REACTION
     Dosage: 60 MILLIGRAM, QDSTARTED AFTER DIAGNOSIS OF LEPROMATOUS LEPROSY WITH CHRONIC ERYTHEMA NODOSUM..
     Route: 048
  2. PREDNISOLONE. [Suspect]
     Active Substance: PREDNISOLONE
     Dosage: 45 MILLIGRAM, QD WEEK 3
     Route: 048
  3. PREDNISOLONE. [Suspect]
     Active Substance: PREDNISOLONE
     Dosage: 15 MILLIGRAM, QDWEEK 9
     Route: 048
  4. DEXAMETHASONE. [Suspect]
     Active Substance: DEXAMETHASONE
     Indication: TYPE 2 LEPRA REACTION
  5. PREDNISOLONE. [Suspect]
     Active Substance: PREDNISOLONE
     Dosage: 30 MILLIGRAM, QDWEEK 6 (RECURRENCE OF ENL)
     Route: 048
  6. THALIDOMIDE [Suspect]
     Active Substance: THALIDOMIDE
     Indication: LEPROMATOUS LEPROSY
     Dosage: 100 MILLIGRAMTHRICE DAILY; STARTED AFTER RECURRENCE OF ENL AT WEEK..
     Route: 065
  7. THALIDOMIDE [Suspect]
     Active Substance: THALIDOMIDE
     Indication: NEURITIS
  8. PREDNISOLONE. [Suspect]
     Active Substance: PREDNISOLONE
     Indication: LEPROMATOUS LEPROSY
     Dosage: 40 MILLIGRAM, QDTHE DOSE HAD TO BE REPEATEDLY ALTERED DUE TO..
     Route: 048
  9. PREDNISOLONE. [Suspect]
     Active Substance: PREDNISOLONE
     Dosage: 50 MILLIGRAM, QDWEEK 2
     Route: 048
  10. PREDNISOLONE. [Suspect]
     Active Substance: PREDNISOLONE
     Dosage: 20 MILLIGRAM, QD WEEK 8
     Route: 048
  11. DEXAMETHASONE. [Suspect]
     Active Substance: DEXAMETHASONE
     Indication: LEPROMATOUS LEPROSY
     Dosage: 8 MILLIGRAM
     Route: 065
  12. PREDNISOLONE. [Suspect]
     Active Substance: PREDNISOLONE
     Dosage: 25 MILLIGRAM, QDWEEK 7
     Route: 048
  13. PREDNISOLONE. [Suspect]
     Active Substance: PREDNISOLONE
     Indication: NEURITIS
     Dosage: 55 MILLIGRAM, QDWEEK 1
     Route: 048
  14. PREDNISOLONE. [Suspect]
     Active Substance: PREDNISOLONE
     Dosage: 35 MILLIGRAM, QD WEEK 5
     Route: 048
  15. DEXAMETHASONE. [Suspect]
     Active Substance: DEXAMETHASONE
     Indication: NEURITIS
  16. PREDNISOLONE. [Suspect]
     Active Substance: PREDNISOLONE
     Dosage: 40 MILLIGRAM, QD WEEK 4
     Route: 048
  17. PREDNISOLONE. [Suspect]
     Active Substance: PREDNISOLONE
     Dosage: 10 MILLIGRAM, QD WEEK 10 (MAINTENANCE DOSE)
     Route: 048
  18. THALIDOMIDE [Suspect]
     Active Substance: THALIDOMIDE
     Indication: TYPE 2 LEPRA REACTION
     Dosage: 100 MILLIGRAM, BID
     Route: 065

REACTIONS (1)
  - Deep vein thrombosis [Unknown]
